FAERS Safety Report 6553579-8 (Version None)
Quarter: 2010Q1

REPORT INFORMATION
  Report Type: 
  Country: None (occurrence: None)
  Receive Date: 20100127
  Receipt Date: 20100119
  Transmission Date: 20100710
  Serious: Yes (Hospitalization)
  Sender: FDA-Public Use
  Company Number: GB-BAYER-200938153GPV

PATIENT
  Age: 40 Year
  Sex: Male
  Weight: 68 kg

DRUGS (11)
  1. SORAFENIB [Suspect]
     Indication: THYROID CANCER METASTATIC
     Dosage: UNIT DOSE: 400 MG
     Dates: start: 20071106, end: 20071113
  2. SORAFENIB [Suspect]
     Dosage: UNIT DOSE: 400 MG
     Dates: start: 20071213, end: 20080422
  3. SORAFENIB [Suspect]
     Dosage: UNIT DOSE: 600 MG
     Dates: start: 20080422, end: 20080528
  4. SORAFENIB [Suspect]
     Dosage: UNIT DOSE: 600 MG
     Dates: start: 20080604, end: 20080606
  5. SORAFENIB [Suspect]
     Dosage: UNIT DOSE: 400 MG
     Dates: start: 20080625, end: 20080805
  6. SORAFENIB [Suspect]
     Dosage: UNIT DOSE: 600 MG
     Dates: start: 20080805
  7. SORAFENIB [Suspect]
     Dosage: UNIT DOSE: 600 MG
     Dates: start: 20081007, end: 20081223
  8. SORAFENIB [Suspect]
     Dosage: UNIT DOSE: 400 MG
     Dates: start: 20081223, end: 20091001
  9. SORAFENIB [Suspect]
     Dosage: UNIT DOSE: 400 MG
     Dates: start: 20091001, end: 20091103
  10. SORAFENIB [Suspect]
     Dosage: UNIT DOSE: 400 MG
     Dates: start: 20091117, end: 20091227
  11. OXYCODONE [Concomitant]
     Indication: CONSTIPATION

REACTIONS (9)
  - ATELECTASIS [None]
  - C-REACTIVE PROTEIN INCREASED [None]
  - CHEST PAIN [None]
  - DYSPNOEA [None]
  - PANIC ATTACK [None]
  - PNEUMONIA [None]
  - PRODUCTIVE COUGH [None]
  - PYREXIA [None]
  - TACHYCARDIA [None]
